FAERS Safety Report 6008540-9 (Version None)
Quarter: 2008Q4

REPORT INFORMATION
  Report Type: 
  Country: None (occurrence: None)
  Receive Date: 20081217
  Receipt Date: 20081215
  Transmission Date: 20090506
  Serious: Yes (Death, Hospitalization, Other)
  Sender: FDA-Public Use
  Company Number: JP-B.I. PHARMACEUTICALS,INC./RIDGEFIELD-2008-BP-08340NB

PATIENT
  Sex: Female

DRUGS (11)
  1. BI-SIFROL TABLETS [Suspect]
     Indication: PARKINSON'S DISEASE
     Dosage: .75MG
     Route: 048
     Dates: start: 20050513, end: 20080318
  2. MEVALOTIN [Concomitant]
     Indication: HYPERLIPIDAEMIA
     Dosage: 10MG
     Route: 048
     Dates: start: 20020309, end: 20080318
  3. LONGES [Concomitant]
     Indication: HYPERTENSION
     Dosage: 10MG
     Route: 048
     Dates: start: 20020322, end: 20080318
  4. ATELEC [Concomitant]
     Indication: HYPERTENSION
     Dosage: 10MG
     Route: 048
     Dates: start: 20050128, end: 20080318
  5. MYONAL [Concomitant]
     Indication: TENSION HEADACHE
     Dosage: 150MG
     Route: 048
     Dates: start: 20050603, end: 20080318
  6. MOHRUS TAPE L [Concomitant]
     Indication: ARTHRALGIA
     Route: 062
     Dates: start: 20050602, end: 20080318
  7. DEPAS [Concomitant]
     Indication: TENSION HEADACHE
     Dosage: 1MG
     Route: 048
     Dates: start: 20050729, end: 20080318
  8. CARBIDOPA + LEVODOPA [Concomitant]
     Indication: PARKINSON'S DISEASE
     Dosage: 400MG
     Route: 048
     Dates: start: 20050708, end: 20080318
  9. VOLTAREN [Concomitant]
     Indication: ARTHRALGIA
     Route: 054
     Dates: start: 20051222, end: 20080318
  10. JUVELA N (TOCOPHEROL NICOTINATE) [Concomitant]
     Indication: VITH NERVE PARALYSIS
     Dosage: 600MG
     Route: 048
     Dates: start: 20080304, end: 20080318
  11. ACTOS [Concomitant]
     Indication: DIABETES MELLITUS
     Dosage: 30MG
     Route: 048
     Dates: start: 20001222, end: 20080318

REACTIONS (9)
  - ANAEMIA [None]
  - C-REACTIVE PROTEIN INCREASED [None]
  - DIABETIC HYPEROSMOLAR COMA [None]
  - DIPLOPIA [None]
  - FOOT FRACTURE [None]
  - MYOCARDIAL INFARCTION [None]
  - PYREXIA [None]
  - SINUSITIS [None]
  - WHITE BLOOD CELL COUNT INCREASED [None]
